FAERS Safety Report 8818510 (Version 1)
Quarter: 2012Q4

REPORT INFORMATION
  Report Type: 
  Country: SE (occurrence: SE)
  Receive Date: 20121001
  Receipt Date: 20121001
  Transmission Date: 20130627
  Serious: Yes (Other)
  Sender: FDA-Public Use
  Company Number: SE-ASTRAZENECA-2012SE73310

PATIENT
  Sex: Male

DRUGS (3)
  1. ATACAND PLUS [Suspect]
     Dosage: 16MG/12.5 MG
     Route: 048
  2. NORMORIX MITE [Suspect]
     Dosage: 5MG/50MG
  3. CALCIUM CARBONATE [Suspect]
     Dosage: 500MG/400 IE

REACTIONS (2)
  - Hypercalcaemia [Recovered/Resolved]
  - Hyperkalaemia [Recovered/Resolved]
